FAERS Safety Report 11183468 (Version 1)
Quarter: 2015Q2

REPORT INFORMATION
  Report Type: Report from Study
  Country: US (occurrence: US)
  Receive Date: 20150612
  Receipt Date: 20150612
  Transmission Date: 20150821
  Serious: Yes (Hospitalization)
  Sender: FDA-Public Use
  Company Number: US-ROCHE-1589884

PATIENT
  Age: 60 Year

DRUGS (3)
  1. BEVACIZUMAB [Suspect]
     Active Substance: BEVACIZUMAB
     Indication: CERVIX CARCINOMA RECURRENT
     Dosage: FREQUENCY- OVER 30-90 MIN ON DAY 1
     Route: 042
     Dates: start: 20100104
  2. TOPOTECAN [Suspect]
     Active Substance: TOPOTECAN\TOPOTECAN HYDROCHLORIDE
     Indication: CERVIX CARCINOMA RECURRENT
     Dosage: FREQUENCY-OVER 30 MIN ON DAYS 1-3
     Route: 042
     Dates: start: 20100104
  3. PACLITAXEL. [Suspect]
     Active Substance: PACLITAXEL
     Indication: CERVIX CARCINOMA RECURRENT
     Dosage: FREQUENCY-OVER 3 HRS ON DAY 1
     Route: 042
     Dates: start: 20100104

REACTIONS (5)
  - Hypoalbuminaemia [Unknown]
  - Hypokalaemia [Unknown]
  - Pain [Unknown]
  - Anaemia [Unknown]
  - Hyponatraemia [Unknown]

NARRATIVE: CASE EVENT DATE: 20100123
